FAERS Safety Report 5480033-7 (Version None)
Quarter: 2007Q4

REPORT INFORMATION
  Report Type: 
  Country: None (occurrence: None)
  Receive Date: 20071008
  Receipt Date: 20070928
  Transmission Date: 20080405
  Serious: Yes (Hospitalization)
  Sender: FDA-Public Use
  Company Number: US-PFIZER INC-2007081115

PATIENT
  Sex: Female

DRUGS (2)
  1. GEODON [Suspect]
  2. DETROL LA [Interacting]

REACTIONS (2)
  - DRUG INTERACTION [None]
  - HALLUCINATION [None]
